FAERS Safety Report 5233349-3 (Version None)
Quarter: 2007Q1

REPORT INFORMATION
  Report Type: 
  Country: None (occurrence: None)
  Receive Date: 20070208
  Receipt Date: 20070205
  Transmission Date: 20070707
  Serious: Yes (Other)
  Sender: FDA-Public Use
  Company Number: US-SP-2006-01634

PATIENT
  Age: 5 Year
  Sex: Female

DRUGS (4)
  1. DAPTACEL [Suspect]
     Indication: IMMUNISATION
     Route: 030
     Dates: start: 20060630
  2. IPOL [Suspect]
     Indication: IMMUNISATION
     Route: 030
     Dates: start: 20060630
  3. TUBERSOL [Suspect]
     Indication: TUBERCULIN TEST
     Route: 023
     Dates: start: 20060630
  4. MMR/MEASLES, MUMPS AND RUBELLA VACCINE [Suspect]
     Indication: IMMUNISATION
     Route: 058
     Dates: start: 20060630

REACTIONS (4)
  - CYANOSIS [None]
  - PALLOR [None]
  - SYNCOPE [None]
  - VOMITING [None]
